FAERS Safety Report 7642932-7 (Version None)
Quarter: 2011Q3

REPORT INFORMATION
  Report Type: 
  Country: None (occurrence: None)
  Receive Date: 20110728
  Receipt Date: 20110718
  Transmission Date: 20111222
  Serious: Yes (Death, Other)
  Sender: FDA-Public Use
  Company Number: US-BAXTER-2011BH022210

PATIENT
  Sex: Male

DRUGS (1)
  1. DIANEAL [Suspect]
     Indication: PERITONEAL DIALYSIS
     Route: 033

REACTIONS (5)
  - CARDIAC FAILURE CONGESTIVE [None]
  - PNEUMONIA [None]
  - INFECTION [None]
  - CHOLECYSTITIS INFECTIVE [None]
  - CYSTITIS [None]
